FAERS Safety Report 6435579-1 (Version None)
Quarter: 2009Q4

REPORT INFORMATION
  Report Type: 
  Country: None (occurrence: None)
  Receive Date: 20091110
  Receipt Date: 20071015
  Transmission Date: 20100525
  Serious: No
  Sender: FDA-Public Use
  Company Number: AECAN200700244

PATIENT
  Age: 49 Year
  Sex: Female

DRUGS (3)
  1. GAMUNEX [Suspect]
     Indication: PLATELET COUNT DECREASED
     Dosage: 600 ML; IV
     Route: 042
     Dates: start: 20070924, end: 20070924
  2. TYLENOL (CAPLET) [Concomitant]
  3. CITAOLPRAM [Concomitant]

REACTIONS (11)
  - BLOOD PRESSURE INCREASED [None]
  - CHEST PAIN [None]
  - CHILLS [None]
  - DYSPNOEA [None]
  - HEADACHE [None]
  - HEART RATE DECREASED [None]
  - NAUSEA [None]
  - PRURITUS [None]
  - TACHYCARDIA [None]
  - URTICARIA [None]
  - VOMITING [None]
